FAERS Safety Report 17558985 (Version 1)
Quarter: 2020Q1

REPORT INFORMATION
  Report Type: Report from Study
  Country: US (occurrence: US)
  Receive Date: 20200319
  Receipt Date: 20200319
  Transmission Date: 20200409
  Serious: Yes (Other)
  Sender: FDA-Public Use
  Company Number: US-AMGEN-USASL2020042453

PATIENT
  Sex: Male

DRUGS (1)
  1. ENBREL [Suspect]
     Active Substance: ETANERCEPT
     Indication: RHEUMATOID ARTHRITIS
     Dosage: UNK
     Route: 065

REACTIONS (6)
  - White blood cell count decreased [Unknown]
  - Intestinal perforation [Unknown]
  - Depression [Unknown]
  - Immunosuppression [Unknown]
  - Suicidal ideation [Unknown]
  - Pain [Unknown]
